FAERS Safety Report 17108576 (Version 4)
Quarter: 2019Q4

REPORT INFORMATION
  Report Type: Spontaneous
  Country: CZ (occurrence: CZ)
  Receive Date: 20191203
  Receipt Date: 20191224
  Transmission Date: 20200122
  Serious: Yes (Hospitalization, Other)
  Sender: FDA-Public Use
  Company Number: CZ-PFIZER INC-2019520076

PATIENT
  Age: 66 Year
  Sex: Female

DRUGS (11)
  1. ATORVASTATIN CALCIUM. [Suspect]
     Active Substance: ATORVASTATIN CALCIUM
     Indication: HYPERLIPIDAEMIA
     Dosage: 20 MG, UNK
     Route: 065
  2. PIOGLITAZONE. [Concomitant]
     Active Substance: PIOGLITAZONE
     Dosage: 15 MG (MORNING)
     Route: 065
     Dates: start: 20190514
  3. PHENOBARBITAL. [Concomitant]
     Active Substance: PHENOBARBITAL
     Dosage: UNK
  4. GLIPTIN [Concomitant]
     Active Substance: SITAGLIPTIN PHOSPHATE
     Dosage: UNK
     Route: 065
  5. PREGABALIN. [Suspect]
     Active Substance: PREGABALIN
     Indication: TYPE 2 DIABETES MELLITUS
     Dosage: 300 MG, DAILY
     Route: 065
  6. TRAMADOL. [Concomitant]
     Active Substance: TRAMADOL
     Dosage: UNK
  7. COTRIMOXAZOLE [Concomitant]
     Active Substance: SULFAMETHOXAZOLE\TRIMETHOPRIM
     Dosage: UNK
  8. VILDAGLIPTIN [Suspect]
     Active Substance: VILDAGLIPTIN
     Indication: HYPERLIPIDAEMIA
     Dosage: 100 MG, DAILY
     Route: 065
  9. GLICLAZIDE [Concomitant]
     Active Substance: GLICLAZIDE
     Dosage: 60 MG (BEFORE BREAKFAST AND AT NIGHT)
     Route: 065
  10. ATENOLOL. [Suspect]
     Active Substance: ATENOLOL
     Indication: HYPERTENSION
     Dosage: 50 MG, UNK
     Route: 048
  11. METAMIZOLE [Concomitant]
     Active Substance: METAMIZOLE

REACTIONS (8)
  - Leukocytosis [Not Recovered/Not Resolved]
  - Diabetes mellitus [Recovering/Resolving]
  - Muscle spasms [Unknown]
  - Haemoglobin increased [Unknown]
  - Drug ineffective [Unknown]
  - Neutrophilia [Unknown]
  - Hyperglycaemia [Recovering/Resolving]
  - Arthralgia [Unknown]

NARRATIVE: CASE EVENT DATE: 201804
